FAERS Safety Report 6694069-1 (Version None)
Quarter: 2010Q2

REPORT INFORMATION
  Report Type: 
  Country: None (occurrence: None)
  Receive Date: 20100423
  Receipt Date: 20100409
  Transmission Date: 20101027
  Serious: Yes (Hospitalization)
  Sender: FDA-Public Use
  Company Number: US-ELI_LILLY_AND_COMPANY-US201003005170

PATIENT
  Age: 78 Year
  Sex: Female
  Weight: 69.841 kg

DRUGS (1)
  1. FORTEO [Suspect]
     Indication: OSTEOPOROSIS
     Dosage: 20 UG, DAILY (1/D)
     Dates: start: 20090801

REACTIONS (4)
  - ARTHROPATHY [None]
  - COLITIS [None]
  - GAIT DISTURBANCE [None]
  - JOINT SWELLING [None]
